FAERS Safety Report 17658145 (Version 2)
Quarter: 2020Q2

REPORT INFORMATION
  Report Type: Spontaneous
  Country: US (occurrence: US)
  Receive Date: 20200411
  Receipt Date: 20200414
  Transmission Date: 20200713
  Serious: Yes (Hospitalization, Other)
  Sender: FDA-Public Use
  Company Number: US-TEVA-2020-US-1220879

PATIENT
  Sex: Female

DRUGS (4)
  1. BUTRANS [Suspect]
     Active Substance: BUPRENORPHINE
     Route: 065
  2. FENTANYL. [Suspect]
     Active Substance: FENTANYL
     Route: 065
  3. ALTRAM (ACETAMINOPHEN\TRAMADOL) [Suspect]
     Active Substance: ACETAMINOPHEN\TRAMADOL HYDROCHLORIDE
     Route: 065
  4. OXYCODONE [Suspect]
     Active Substance: OXYCODONE
     Indication: PAIN
     Route: 065

REACTIONS (4)
  - Abdominal discomfort [Unknown]
  - Suicide attempt [Unknown]
  - Adverse event [Unknown]
  - Drug dependence [Unknown]
